FAERS Safety Report 8843472 (Version 1)
Quarter: 2012Q4

REPORT INFORMATION
  Report Type: 
  Country: US (occurrence: US)
  Receive Date: 20121016
  Receipt Date: 20121016
  Transmission Date: 20130627
  Serious: Yes (Other)
  Sender: FDA-Public Use
  Company Number: US-ROCHE-1127225

PATIENT
  Sex: Male

DRUGS (1)
  1. NUTROPIN [Suspect]
     Indication: GROWTH HORMONE DEFICIENCY
     Route: 065

REACTIONS (9)
  - Blindness [Unknown]
  - Eyelid ptosis [Unknown]
  - Scar [Unknown]
  - Rhinorrhoea [Unknown]
  - Back pain [Unknown]
  - Spinal pain [Unknown]
  - Headache [Unknown]
  - Seasonal allergy [Unknown]
  - Pharyngeal disorder [Unknown]
